FAERS Safety Report 4860944-3 (Version None)
Quarter: 2005Q4

REPORT INFORMATION
  Report Type: 
  Country: None (occurrence: None)
  Receive Date: 20051220
  Receipt Date: 20051209
  Transmission Date: 20060501
  Serious: Yes (Other)
  Sender: FDA-Public Use
  Company Number: CA-BRISTOL-MYERS SQUIBB COMPANY-13218581

PATIENT
  Age: 71 Year
  Sex: Female

DRUGS (6)
  1. TEQUIN [Suspect]
     Route: 042
  2. ASPIRIN [Concomitant]
  3. OXYBUTYNIN [Concomitant]
  4. PREVACID [Concomitant]
  5. QUININE [Concomitant]
  6. ZESTORETIC [Concomitant]

REACTIONS (3)
  - ELECTROCARDIOGRAM QT PROLONGED [None]
  - FEELING JITTERY [None]
  - HYPOGLYCAEMIA [None]
